FAERS Safety Report 24692302 (Version 1)
Quarter: 2024Q4

REPORT INFORMATION
  Report Type: Spontaneous
  Country: US (occurrence: US)
  Receive Date: 20241203
  Receipt Date: 20241203
  Transmission Date: 20250115
  Serious: Yes (Other)
  Sender: NOVARTIS
  Company Number: US-002147023-NVSC2024US230111

PATIENT
  Sex: Female
  Weight: 68.7 kg

DRUGS (5)
  1. LETROZOLE [Suspect]
     Active Substance: LETROZOLE
     Indication: Breast cancer female
     Dosage: UNK
     Route: 065
  2. LETROZOLE [Suspect]
     Active Substance: LETROZOLE
     Indication: Hormone receptor positive breast cancer
  3. LETROZOLE [Suspect]
     Active Substance: LETROZOLE
     Indication: Breast cancer female
  4. IBRANCE [Suspect]
     Active Substance: PALBOCICLIB
     Indication: Product used for unknown indication
     Dosage: 125 MG (TAKE 1 TABLET BY MOUTH ON DAYS 1-21 OFF 7 DAYS)
     Route: 048
     Dates: start: 20240401
  5. NITROGLYCERIN [Concomitant]
     Active Substance: NITROGLYCERIN
     Indication: Product used for unknown indication
     Dosage: UNK
     Route: 060
     Dates: start: 20240411

REACTIONS (5)
  - Invasive lobular breast carcinoma [Unknown]
  - Neutropenia [Unknown]
  - Diarrhoea [Unknown]
  - Cutaneous symptom [Unknown]
  - Fatigue [Unknown]
